FAERS Safety Report 4528531-4 (Version None)
Quarter: 2004Q4

REPORT INFORMATION
  Report Type: 
  Country: None (occurrence: None)
  Receive Date: 20041216
  Receipt Date: 20040827
  Transmission Date: 20050328
  Serious: No
  Sender: FDA-Public Use
  Company Number: US-BRISTOL-MYERS SQUIBB COMPANY-12685582

PATIENT
  Age: 70 Year
  Sex: Female
  Weight: 70 kg

DRUGS (5)
  1. CHOLESTYRAMINE [Suspect]
     Indication: CHOLECYSTECTOMY
     Route: 048
     Dates: start: 20020401
  2. LISINOPRIL [Concomitant]
     Dosage: DURATION OF THERAPY:  ^A FEW YEARS^
  3. HYDROCHLOROTHIAZIDE [Concomitant]
     Dosage: DURATION OF THERAPY:  ^A FEW YEARS^
  4. PREMARIN [Concomitant]
     Dosage: DURATION OF THERAPY:  ^A FEW YEARS^
  5. MULTIVITAMIN [Concomitant]
     Dosage: DURATION OF THERAPY:  ^A FEW YEARS^

REACTIONS (1)
  - DIARRHOEA [None]
